FAERS Safety Report 13334490 (Version 1)
Quarter: 2017Q1

REPORT INFORMATION
  Report Type: Spontaneous
  Country: US (occurrence: US)
  Receive Date: 20170314
  Receipt Date: 20170314
  Transmission Date: 20170428
  Serious: Yes (Hospitalization, Other)
  Sender: FDA-Public Use
  Company Number: US-JNJFOC-20170308776

PATIENT
  Sex: Female

DRUGS (1)
  1. INVEGA SUSTENNA [Suspect]
     Active Substance: PALIPERIDONE PALMITATE
     Indication: PRODUCT USED FOR UNKNOWN INDICATION
     Route: 030

REACTIONS (11)
  - Thinking abnormal [Unknown]
  - Somnolence [Unknown]
  - Hospitalisation [Unknown]
  - Unevaluable event [Unknown]
  - Tardive dyskinesia [Unknown]
  - Visual impairment [Unknown]
  - Speech disorder [Unknown]
  - Pyrexia [Unknown]
  - Loss of consciousness [Unknown]
  - Bipolar disorder [Unknown]
  - Hypersensitivity [Unknown]
